FAERS Safety Report 5012071-2 (Version None)
Quarter: 2006Q2

REPORT INFORMATION
  Report Type: 
  Country: None (occurrence: None)
  Receive Date: 20060526
  Receipt Date: 20060519
  Transmission Date: 20061013
  Serious: Yes (Other)
  Sender: FDA-Public Use
  Company Number: JP-JPN-A200601647

PATIENT
  Age: 23 Year
  Sex: Male
  Weight: 66 kg

DRUGS (2)
  1. MODACIN [Suspect]
     Indication: PNEUMONIA
     Dosage: 2G TWICE PER DAY
     Route: 042
     Dates: start: 20060510, end: 20060516
  2. VEEN-3G [Concomitant]
     Route: 042
     Dates: start: 20060510, end: 20060512

REACTIONS (1)
  - ALANINE AMINOTRANSFERASE INCREASED [None]
